FAERS Safety Report 7788544-6 (Version None)
Quarter: 2011Q3

REPORT INFORMATION
  Report Type: 
  Country: None (occurrence: None)
  Receive Date: 20110922
  Receipt Date: 20110913
  Transmission Date: 20111222
  Serious: Yes (Hospitalization)
  Sender: FDA-Public Use
  Company Number: 003-062

PATIENT
  Age: 26 Year
  Sex: Female
  Weight: 56.6996 kg

DRUGS (7)
  1. CIPROFLOXACIN [Concomitant]
  2. LEXAPRO [Concomitant]
  3. CROFAB [Suspect]
     Indication: ACCIDENTAL EXPOSURE
     Dates: start: 20110913, end: 20110913
  4. CROFAB [Suspect]
  5. PREDNISONE [Concomitant]
  6. SYTHROID [Concomitant]
  7. CALCIUM CARBONATE [Concomitant]

REACTIONS (4)
  - RASH [None]
  - ERYTHEMA [None]
  - BURNING SENSATION [None]
  - ACCIDENTAL EXPOSURE [None]
